FAERS Safety Report 15504324 (Version 1)
Quarter: 2018Q4

REPORT INFORMATION
  Report Type: Spontaneous
  Country: US (occurrence: US)
  Receive Date: 20181014
  Receipt Date: 20181014
  Transmission Date: 20190205
  Serious: Yes (Hospitalization, Disabling, Other)
  Sender: FDA-Public Use
  Company Number: None

PATIENT
  Age: 35 Year
  Sex: Female
  Weight: 92.99 kg

DRUGS (1)
  1. MORPHINE [Suspect]
     Active Substance: MORPHINE

REACTIONS (7)
  - Gait disturbance [None]
  - Autoimmune disorder [None]
  - Hypopnoea [None]
  - Movement disorder [None]
  - Pain [None]
  - Fall [None]
  - Cerebrovascular accident [None]

NARRATIVE: CASE EVENT DATE: 20181013
